FAERS Safety Report 7115340-5 (Version None)
Quarter: 2010Q4

REPORT INFORMATION
  Report Type: 
  Country: None (occurrence: None)
  Receive Date: 20101122
  Receipt Date: 20101117
  Transmission Date: 20110411
  Serious: Yes (Death, Life-Threatening)
  Sender: FDA-Public Use
  Company Number: DE-BRISTOL-MYERS SQUIBB COMPANY-15355225

PATIENT
  Age: 77 Year
  Sex: Female
  Weight: 76 kg

DRUGS (7)
  1. ONGLYZA [Suspect]
     Indication: TYPE 2 DIABETES MELLITUS
     Route: 048
     Dates: start: 20100303
  2. ASPIRIN [Concomitant]
     Dosage: WITH THE REGIMEN 0-1-0
  3. BISOPROLOL FUMARATE [Concomitant]
     Dosage: WITH THE REGIMEN 1-0-1
  4. ISOSORBIDE DINITRATE [Concomitant]
     Dosage: WITH THE REGIMEN 1-0-0
  5. MARCUMAR [Concomitant]
     Dosage: ACCORDING TO INR VALUE
  6. MICARDIS HCT [Concomitant]
     Dosage: 1DF=40MG + 12.5MG.WITH THE REGIMEN 0.5-0-0
  7. PRAVASTATIN SODIUM [Concomitant]
     Dosage: WITH THE REGIMEN 0-0-1

REACTIONS (1)
  - MYOCARDIAL INFARCTION [None]
